FAERS Safety Report 6722896-0 (Version None)
Quarter: 2010Q2

REPORT INFORMATION
  Report Type: 
  Country: None (occurrence: None)
  Receive Date: 20100511
  Receipt Date: 20100427
  Transmission Date: 20101027
  Serious: Yes (Hospitalization)
  Sender: FDA-Public Use
  Company Number: 2009EU002517

PATIENT
  Age: 77 Year
  Sex: Male
  Weight: 95.5 kg

DRUGS (29)
  1. TACROLIMUS [Suspect]
     Indication: RENAL TRANSPLANT
     Dosage: 3.5 MG, BID ORAL
     Route: 048
     Dates: start: 20090512
  2. CELLCEPT [Suspect]
     Indication: RENAL TRANSPLANT
     Dosage: 500 MG, BID ORAL
     Route: 048
     Dates: start: 20090512
  3. CORTICOSTEROID NOS (CORTICOSTEROID NOS) [Suspect]
     Indication: RENAL TRANSPLANT
     Dosage: 15 MG, UID/QD, ORAL
     Route: 048
     Dates: start: 20090512
  4. CANDESARTAN [Concomitant]
  5. SIMVASTATIN [Concomitant]
  6. CITALOPRAM [Concomitant]
  7. DARBEPOETIN ALFA [Concomitant]
  8. METOPROLOL TARTRATE [Concomitant]
  9. ACETYLSALICYLSYRE (ACETYLSALICYLIC ACID) [Concomitant]
  10. KALCYTRIOL (CALCITRIOL) [Concomitant]
  11. ESOMEPRAZOL (ESOMEPRAZOLE MAGNESIUM) [Concomitant]
  12. LERCANIDIPINE [Concomitant]
  13. PARACETAMOL [Concomitant]
  14. OXYCODONE HCL [Concomitant]
  15. KETOBEMIDONE [Concomitant]
  16. DIAZEPAM [Concomitant]
  17. METOCLOPRAMIDE [Concomitant]
  18. ONDASETRON [Concomitant]
  19. NALOXONE HYDROCHLORIDE [Concomitant]
  20. SULFAMETHOXAZOLE AND TRIMETHOPRIM [Concomitant]
  21. FUROSEMID [Concomitant]
  22. PREDNISONE TAB [Concomitant]
  23. BACTRIM [Concomitant]
  24. ALBYLE-E (ACETYLSALICYLIC ACID, MAGNESIUM OXIDE) [Concomitant]
  25. NEXIUM IV [Concomitant]
  26. METOPROLOL SUCCINATE [Concomitant]
  27. LERCANIDIPINE [Concomitant]
  28. CIPRAMIL (CITALOPRAM) [Concomitant]
  29. MINIFOM (SIMETICONE) [Concomitant]

REACTIONS (1)
  - WOUND COMPLICATION [None]
